FAERS Safety Report 11405188 (Version 1)
Quarter: 2015Q3

REPORT INFORMATION
  Report Type: Spontaneous
  Country: TR (occurrence: TR)
  Receive Date: 20150821
  Receipt Date: 20150821
  Transmission Date: 20151125
  Serious: Yes (Other)
  Sender: FDA-Public Use
  Company Number: PHHY2015TR098439

PATIENT
  Age: 45 Year
  Sex: Male

DRUGS (2)
  1. CLOBETASOL PROPIONATE. [Suspect]
     Active Substance: CLOBETASOL PROPIONATE
     Indication: PSORIASIS
     Dosage: 150 MG/WEEK
     Route: 061
  2. ASPIRIN. [Concomitant]
     Active Substance: ASPIRIN
     Indication: ARTERIOSCLEROSIS
     Route: 065

REACTIONS (10)
  - Skin striae [Unknown]
  - Osteoporosis [Unknown]
  - Intentional product misuse [Unknown]
  - Obesity [Unknown]
  - Multiple fractures [Unknown]
  - Psoriasis [Unknown]
  - Hypothalamic pituitary adrenal axis suppression [Unknown]
  - Spinal compression fracture [Unknown]
  - Back pain [Unknown]
  - Skin atrophy [Unknown]
